FAERS Safety Report 17952501 (Version 2)
Quarter: 2020Q3

REPORT INFORMATION
  Report Type: Report from Study
  Country: CA (occurrence: CA)
  Receive Date: 20200627
  Receipt Date: 20200708
  Transmission Date: 20201103
  Serious: Yes (Hospitalization, Other)
  Sender: FDA-Public Use
  Company Number: CA-ROCHE-1619322

PATIENT
  Age: 20 Year
  Sex: Female
  Weight: 81.5 kg

DRUGS (15)
  1. PREDNISONE. [Suspect]
     Active Substance: PREDNISONE
     Indication: PRODUCT USED FOR UNKNOWN INDICATION
     Route: 065
  2. ZANTAC [Concomitant]
     Active Substance: RANITIDINE HYDROCHLORIDE
  3. ACTEMRA [Suspect]
     Active Substance: TOCILIZUMAB
     Route: 042
  4. ACTEMRA [Suspect]
     Active Substance: TOCILIZUMAB
     Dosage: LAST DOSE PRIOR TO SAE ON 06/JAN/2016.
     Route: 042
     Dates: start: 20151218
  5. ACTEMRA [Suspect]
     Active Substance: TOCILIZUMAB
     Route: 042
     Dates: start: 20160204
  6. ACTEMRA [Suspect]
     Active Substance: TOCILIZUMAB
     Route: 042
     Dates: start: 20160310
  7. ACTEMRA [Suspect]
     Active Substance: TOCILIZUMAB
     Indication: STILL^S DISEASE
     Route: 058
     Dates: start: 20170908
  8. CEPHALEXIN [CEFALEXIN] [Suspect]
     Active Substance: CEPHALEXIN
     Indication: PRODUCT USED FOR UNKNOWN INDICATION
     Route: 065
  9. NAPROXEN. [Concomitant]
     Active Substance: NAPROXEN
  10. ACTEMRA [Suspect]
     Active Substance: TOCILIZUMAB
     Route: 042
     Dates: start: 20160324
  11. TYLENOL ARTHRITIS PAIN [Concomitant]
     Active Substance: ACETAMINOPHEN
  12. ACTEMRA [Suspect]
     Active Substance: TOCILIZUMAB
     Indication: STILL^S DISEASE
     Route: 042
     Dates: start: 20150723
  13. ACTEMRA [Suspect]
     Active Substance: TOCILIZUMAB
     Route: 042
     Dates: start: 20150923
  14. ACTEMRA [Suspect]
     Active Substance: TOCILIZUMAB
     Route: 042
     Dates: start: 20151201
  15. ACTEMRA [Suspect]
     Active Substance: TOCILIZUMAB
     Route: 042
     Dates: start: 20160225

REACTIONS (28)
  - Pneumonia [Recovering/Resolving]
  - Pallor [Not Recovered/Not Resolved]
  - Nausea [Not Recovered/Not Resolved]
  - Poor venous access [Unknown]
  - Hypersensitivity [Unknown]
  - Keloid scar [Unknown]
  - Decreased appetite [Unknown]
  - Vascular rupture [Unknown]
  - Fatigue [Not Recovered/Not Resolved]
  - Body temperature decreased [Unknown]
  - Appendicitis [Recovering/Resolving]
  - Anaphylactic reaction [Unknown]
  - Anxiety [Not Recovered/Not Resolved]
  - Dehydration [Unknown]
  - Respiratory rate increased [Unknown]
  - Joint abscess [Recovered/Resolved]
  - Blood pressure diastolic decreased [Unknown]
  - Blood pressure increased [Unknown]
  - Catheter site discharge [Not Recovered/Not Resolved]
  - Vomiting [Recovered/Resolved]
  - Heart rate increased [Unknown]
  - Blood pressure diastolic abnormal [Unknown]
  - Chest pain [Recovered/Resolved]
  - Scratch [Unknown]
  - Ovarian cyst [Unknown]
  - Dry skin [Unknown]
  - Animal scratch [Recovering/Resolving]
  - Gastritis [Unknown]

NARRATIVE: CASE EVENT DATE: 20150724
